FAERS Safety Report 4803282-7 (Version None)
Quarter: 2005Q4

REPORT INFORMATION
  Report Type: 
  Country: None (occurrence: None)
  Receive Date: 20051019
  Receipt Date: 20051004
  Transmission Date: 20060501
  Serious: Yes (Hospitalization)
  Sender: FDA-Public Use
  Company Number: US-AMGEN-US153012

PATIENT
  Sex: Female

DRUGS (10)
  1. ENBREL [Suspect]
     Indication: PSORIASIS
     Dates: start: 20050124, end: 20050801
  2. IMIPRAMINE [Concomitant]
  3. ESTRADIOL [Concomitant]
  4. PLAVIX [Concomitant]
  5. ASPIRIN [Concomitant]
  6. XANAX [Concomitant]
  7. ATENOLOL [Concomitant]
  8. LASIX [Concomitant]
  9. ENALAPRIL [Concomitant]
  10. LIPITOR [Concomitant]

REACTIONS (12)
  - APHASIA [None]
  - ASTHENIA [None]
  - AZOTAEMIA [None]
  - CEREBRAL ISCHAEMIA [None]
  - CEREBROVASCULAR ACCIDENT [None]
  - CONDITION AGGRAVATED [None]
  - CONVULSION [None]
  - COORDINATION ABNORMAL [None]
  - ENCEPHALITIS HERPES [None]
  - ESCHERICHIA URINARY TRACT INFECTION [None]
  - HYPERTENSION [None]
  - INCOHERENT [None]
